FAERS Safety Report 6173923-3 (Version None)
Quarter: 2009Q2

REPORT INFORMATION
  Report Type: 
  Country: None (occurrence: None)
  Receive Date: 20090429
  Receipt Date: 20090429
  Transmission Date: 20091009
  Serious: Yes (Other)
  Sender: FDA-Public Use
  Company Number: None

PATIENT
  Age: 11 Year
  Sex: Male
  Weight: 43.0917 kg

DRUGS (2)
  1. SERTRALINE [Suspect]
     Indication: ANXIETY
     Dosage: 37.5 MG PER DAY -2.5 PILLS- ONCE PER DAY PO APPROX. 3 MONTHS
     Route: 048
     Dates: start: 20090323, end: 20090416
  2. SERTRALINE [Suspect]
     Indication: DEPRESSION
     Dosage: 37.5 MG PER DAY -2.5 PILLS- ONCE PER DAY PO APPROX. 3 MONTHS
     Route: 048
     Dates: start: 20090323, end: 20090416

REACTIONS (4)
  - AGGRESSION [None]
  - ANGER [None]
  - DRUG INEFFECTIVE [None]
  - PRODUCT SUBSTITUTION ISSUE [None]
